FAERS Safety Report 6232931-4 (Version None)
Quarter: 2009Q2

REPORT INFORMATION
  Report Type: 
  Country: None (occurrence: None)
  Receive Date: 20090612
  Receipt Date: 20090612
  Transmission Date: 20091009
  Serious: Yes (Hospitalization)
  Sender: FDA-Public Use
  Company Number: None

PATIENT
  Age: 89 Year
  Sex: Female

DRUGS (6)
  1. LUCENTIS [Suspect]
     Indication: CHOROIDAL NEOVASCULARISATION
     Dosage: 1.0MG INTRAVITREAL INJ
     Dates: start: 20080709
  2. LUCENTIS [Suspect]
     Indication: CHOROIDAL NEOVASCULARISATION
     Dosage: 1.0MG INTRAVITREAL INJ
     Dates: start: 20090316
  3. LASIX [Concomitant]
  4. DIOVAN [Concomitant]
  5. COUMADIN [Concomitant]
  6. METAPROLOL [Concomitant]

REACTIONS (6)
  - HAEMATURIA [None]
  - HYPERTENSION [None]
  - HYPOKALAEMIA [None]
  - HYPONATRAEMIA [None]
  - POST PROCEDURAL COMPLICATION [None]
  - RETROPERITONEAL HAEMATOMA [None]
